FAERS Safety Report 20949437 (Version 1)
Quarter: 2022Q2

REPORT INFORMATION
  Report Type: Spontaneous
  Country: BR (occurrence: BR)
  Receive Date: 20220613
  Receipt Date: 20220613
  Transmission Date: 20220721
  Serious: Yes (Death, Other)
  Sender: FDA-Public Use
  Company Number: BR-SA-2020SA205881

PATIENT
  Age: 63 Year
  Sex: Female

DRUGS (2)
  1. DILTIAZEM HYDROCHLORIDE [Suspect]
     Active Substance: DILTIAZEM HYDROCHLORIDE
     Indication: Arrhythmia
     Dosage: 10 YEARS 11 MONTHS 3 DAYS
     Route: 048
     Dates: start: 20100101
  2. DILTIAZEM HYDROCHLORIDE [Suspect]
     Active Substance: DILTIAZEM HYDROCHLORIDE
     Dosage: N THE MORNING AND AT NIGHT
     Route: 048

REACTIONS (7)
  - Metastatic malignant melanoma [Fatal]
  - Haemorrhage [Not Recovered/Not Resolved]
  - Vein rupture [Unknown]
  - Vaginal haemorrhage [Not Recovered/Not Resolved]
  - Blood pressure abnormal [Unknown]
  - Ill-defined disorder [Unknown]
  - Drug ineffective [Unknown]

NARRATIVE: CASE EVENT DATE: 20200401
